FAERS Safety Report 8882248 (Version 1)
Quarter: 2012Q4

REPORT INFORMATION
  Report Type: 
  Country: US (occurrence: US)
  Receive Date: 20121102
  Receipt Date: 20121102
  Transmission Date: 20130627
  Serious: Yes (Death, Hospitalization, Other)
  Sender: FDA-Public Use
  Company Number: US-ROCHE-1131258

PATIENT
  Sex: Male

DRUGS (11)
  1. RITUXAN [Suspect]
     Indication: IDIOPATHIC THROMBOCYTOPENIC PURPURA
     Route: 065
  2. RITUXAN [Suspect]
     Route: 042
     Dates: start: 20000619, end: 20000725
  3. VINCRISTINE [Suspect]
     Indication: PRODUCT USED FOR UNKNOWN INDICATION
     Route: 065
  4. VINBLASTINE [Suspect]
     Indication: PRODUCT USED FOR UNKNOWN INDICATION
     Route: 065
  5. TYLENOL [Concomitant]
     Route: 048
  6. BENADRYL [Concomitant]
  7. PREDNISONE [Concomitant]
  8. CYTOXAN [Concomitant]
     Route: 048
  9. VICODIN ES [Concomitant]
     Route: 065
  10. DEXAMETHASONE [Concomitant]
  11. IMURAN [Concomitant]
     Route: 048

REACTIONS (13)
  - Pneumonia [Fatal]
  - Neuropathy peripheral [Unknown]
  - Oedema peripheral [Unknown]
  - Dyspnoea exertional [Unknown]
  - Insomnia [Unknown]
  - Asthenia [Unknown]
  - Arthralgia [Unknown]
  - Contusion [Unknown]
  - Respiratory failure [Fatal]
  - Cardiac failure congestive [Fatal]
  - Arteriosclerosis coronary artery [Fatal]
  - Osteoarthritis [Unknown]
  - No therapeutic response [Unknown]
